FAERS Safety Report 7952185-8 (Version None)
Quarter: 2011Q4

REPORT INFORMATION
  Report Type: 
  Country: None (occurrence: None)
  Receive Date: 20111201
  Receipt Date: 20111130
  Transmission Date: 20120403
  Serious: Yes (Life-Threatening, Other)
  Sender: FDA-Public Use
  Company Number: PHEH2011US009254

PATIENT
  Sex: Male
  Weight: 59 kg

DRUGS (6)
  1. EXELON [Concomitant]
     Indication: PARKINSON'S DISEASE
     Dosage: 9.5 MG/ 24 HR
     Route: 062
  2. RECLAST [Suspect]
     Indication: OSTEOPOROSIS
     Dosage: 5 MG
     Route: 042
     Dates: start: 20111110
  3. COLECALCIFEROL [Concomitant]
     Indication: OSTEOPOROSIS
     Dosage: 1000 IU, BID
     Route: 048
  4. STALEVO 100 [Concomitant]
     Indication: PARKINSON'S DISEASE
     Dosage: 200 MG
     Route: 048
  5. ASPIRIN [Concomitant]
     Dosage: 325 MG
     Route: 048
  6. CLOTRIMAZOLE [Concomitant]
     Route: 061

REACTIONS (3)
  - MUSCULAR WEAKNESS [None]
  - ABASIA [None]
  - FALL [None]
